FAERS Safety Report 9717819 (Version 1)
Quarter: 2013Q4

REPORT INFORMATION
  Report Type: Spontaneous
  Country: US (occurrence: US)
  Receive Date: 20131125
  Receipt Date: 20131125
  Transmission Date: 20140711
  Serious: No
  Sender: FDA-Public Use
  Company Number: US-VIVUS-2012V1000241

PATIENT
  Age: 63 Year
  Sex: Female
  Weight: 121.67 kg

DRUGS (3)
  1. QSYMIA 7.5MG/46MG [Suspect]
     Indication: WEIGHT DECREASED
     Dates: start: 20121029, end: 20121029
  2. SYMBICORT [Concomitant]
     Indication: ASTHMA
     Dosage: DAILY DOSE: 2 INHAL.,
  3. FORADIL [Concomitant]
     Indication: ASTHMA
     Dosage: DAILY DOSE: 2 INHAL.,

REACTIONS (4)
  - Asthma [Recovered/Resolved]
  - Somnolence [Recovered/Resolved]
  - Headache [Recovered/Resolved]
  - Incorrect dose administered [Recovered/Resolved]
